FAERS Safety Report 9165917 (Version 2)
Quarter: 2013Q2

REPORT INFORMATION
  Report Type: Spontaneous
  Country: US (occurrence: US)
  Receive Date: 20130315
  Receipt Date: 20130405
  Transmission Date: 20140414
  Serious: Yes (Other)
  Sender: FDA-Public Use
  Company Number: US-JNJFOC-20130303140

PATIENT
  Age: 78 Year
  Sex: Female
  Weight: 57.06 kg

DRUGS (10)
  1. XARELTO [Suspect]
     Indication: CEREBROVASCULAR ACCIDENT PROPHYLAXIS
     Route: 048
     Dates: start: 20130131, end: 20130219
  2. XARELTO [Suspect]
     Indication: ATRIAL FIBRILLATION
     Route: 048
     Dates: start: 20130131, end: 20130219
  3. TORSEMIDE [Concomitant]
     Route: 065
  4. AMIODARONE [Concomitant]
     Route: 065
  5. DIGOXIN [Concomitant]
     Route: 065
  6. VALSARTAN [Concomitant]
     Route: 065
  7. METOPROLOL [Concomitant]
     Route: 065
  8. METFORMIN [Concomitant]
     Route: 065
  9. POTASSIUM [Concomitant]
     Route: 065
  10. LORAZEPAM [Concomitant]
     Route: 065

REACTIONS (8)
  - Gastrointestinal haemorrhage [Recovered/Resolved]
  - Gastric polyps [Unknown]
  - Gastritis [Unknown]
  - Duodenitis [Unknown]
  - Diverticulum [Unknown]
  - Melanosis [Unknown]
  - Haemorrhoids [Unknown]
  - Stomach mass [Unknown]
